FAERS Safety Report 9321782 (Version 2)
Quarter: 2013Q2

REPORT INFORMATION
  Report Type: Spontaneous
  Country: FR (occurrence: None)
  Receive Date: 20130528
  Receipt Date: 20130611
  Transmission Date: 20140414
  Serious: Yes (Hospitalization, Other)
  Sender: FDA-Public Use
  Company Number: FR-ZYDUS-001179

PATIENT
  Age: 70 Year
  Sex: Female

DRUGS (3)
  1. METFORMIN (METFORMIN) [Suspect]
  2. INDAPAMIDE (INDAPAMIDE) [Suspect]
     Indication: POSTOPERATIVE ANALGESIA
  3. KETOPROFEN [Suspect]
     Indication: POSTOPERATIVE ANALGESIA
     Route: 042

REACTIONS (10)
  - Renal failure acute [None]
  - Lactic acidosis [None]
  - Oliguria [None]
  - Hypoglycaemia [None]
  - Hypothermia [None]
  - Vomiting [None]
  - Tachycardia [None]
  - Hypotension [None]
  - Respiratory distress [None]
  - Haemodialysis [None]
